FAERS Safety Report 9707353 (Version 1)
Quarter: 2013Q4

REPORT INFORMATION
  Report Type: Spontaneous
  Country: US (occurrence: US)
  Receive Date: 20131125
  Receipt Date: 20131125
  Transmission Date: 20140711
  Serious: No
  Sender: FDA-Public Use
  Company Number: US-GLAXOSMITHKLINE-A1030354A

PATIENT
  Age: 65 Year
  Sex: Female

DRUGS (9)
  1. FLOVENT [Suspect]
     Indication: ASTHMA
     Dosage: 1PUFF PER DAY
     Route: 055
     Dates: start: 2013
  2. COMBIVENT [Concomitant]
  3. ALBUTEROL/IPRATROPIUM [Concomitant]
  4. PROTONIX [Concomitant]
  5. TOPROL [Concomitant]
  6. CLONAZEPAM [Concomitant]
  7. TEMAZEPAM [Concomitant]
  8. FLUTICASONE NASAL SPRAY [Concomitant]
  9. LORATADINE [Concomitant]

REACTIONS (23)
  - Chronic obstructive pulmonary disease [Unknown]
  - Eosinophil count increased [Not Recovered/Not Resolved]
  - Oropharyngeal pain [Unknown]
  - Dysphonia [Not Recovered/Not Resolved]
  - Laryngitis [Not Recovered/Not Resolved]
  - Chest pain [Recovered/Resolved]
  - Electrocardiogram abnormal [Unknown]
  - Echocardiogram abnormal [Unknown]
  - Cardiac stress test abnormal [Unknown]
  - Upper respiratory tract infection [Not Recovered/Not Resolved]
  - Productive cough [Unknown]
  - Sputum discoloured [Unknown]
  - Dyspnoea [Unknown]
  - Orthopnoea [Unknown]
  - Chest discomfort [Unknown]
  - Inspiratory capacity decreased [Unknown]
  - Malaise [Not Recovered/Not Resolved]
  - Thirst [Unknown]
  - Expired drug administered [Unknown]
  - Aphasia [Unknown]
  - Injury [Not Recovered/Not Resolved]
  - Ill-defined disorder [Not Recovered/Not Resolved]
  - Aphonia [Not Recovered/Not Resolved]
